FAERS Safety Report 21239272 (Version 1)
Quarter: 2022Q3

REPORT INFORMATION
  Report Type: Spontaneous
  Country: US (occurrence: None)
  Receive Date: 20220819
  Receipt Date: 20220819
  Transmission Date: 20221027
  Serious: Yes (Disabling)
  Sender: FDA-Public Use
  Company Number: None

PATIENT
  Age: 49 Year
  Sex: Male
  Weight: 72 kg

DRUGS (3)
  1. HALLS HONEY [Suspect]
     Active Substance: MENTHOL
     Indication: Product used for unknown indication
     Dosage: 30 TABLETS ORAL
     Route: 048
     Dates: start: 20220818, end: 20220818
  2. PROBIOTICS NOS [Concomitant]
     Active Substance: PROBIOTICS NOS
  3. MAGNESIUM [Concomitant]
     Active Substance: MAGNESIUM

REACTIONS (5)
  - Throat irritation [None]
  - Dysgeusia [None]
  - Feeling abnormal [None]
  - Product quality issue [None]
  - Laryngeal injury [None]

NARRATIVE: CASE EVENT DATE: 20220818
